FAERS Safety Report 6792485-0 (Version None)
Quarter: 2010Q2

REPORT INFORMATION
  Report Type: 
  Country: None (occurrence: None)
  Receive Date: 20100624
  Receipt Date: 20080812
  Transmission Date: 20101027
  Serious: No
  Sender: FDA-Public Use
  Company Number: US-PFIZER INC-2008067172

PATIENT
  Sex: Female
  Weight: 61.8 kg

DRUGS (8)
  1. GEODON [Suspect]
     Indication: THINKING ABNORMAL
     Route: 048
     Dates: start: 20070101
  2. ALBUTEROL [Concomitant]
  3. ADVAIR DISKUS 100/50 [Concomitant]
  4. CLOMIPRAMINE [Concomitant]
  5. LEXAPRO [Concomitant]
  6. TOPAMAX [Concomitant]
  7. TRAZODONE HYDROCHLORIDE [Concomitant]
  8. LAMICTAL [Concomitant]

REACTIONS (1)
  - PAROSMIA [None]
